FAERS Safety Report 5883314-8 (Version None)
Quarter: 2008Q3

REPORT INFORMATION
  Report Type: 
  Country: None (occurrence: None)
  Receive Date: 20080911
  Receipt Date: 20080911
  Transmission Date: 20090109
  Serious: Yes (Other)
  Sender: FDA-Public Use
  Company Number: None

PATIENT
  Age: 30 Year
  Sex: Female
  Weight: 86.1834 kg

DRUGS (1)
  1. TREXIMET [Suspect]
     Indication: MIGRAINE
     Dosage: 1 TABLET 1 PO, ONE TIME

REACTIONS (3)
  - CHEST DISCOMFORT [None]
  - MUSCLE TIGHTNESS [None]
  - NAUSEA [None]
